FAERS Safety Report 10258617 (Version 1)
Quarter: 2014Q2

REPORT INFORMATION
  Report Type: Spontaneous
  Country: ES (occurrence: ES)
  Receive Date: 20140625
  Receipt Date: 20140625
  Transmission Date: 20141212
  Serious: Yes (Other)
  Sender: FDA-Public Use
  Company Number: ES-BRISTOL-MYERS SQUIBB COMPANY-21059316

PATIENT
  Age: 35 Year
  Sex: Male

DRUGS (6)
  1. ARIPIPRAZOLE [Suspect]
     Indication: SCHIZOPHRENIA, PARANOID TYPE
     Dosage: 1DF: UP TO 15MG
  2. OLANZAPINE [Concomitant]
     Indication: SCHIZOPHRENIA, PARANOID TYPE
  3. VALPROIC ACID [Concomitant]
     Indication: SCHIZOPHRENIA, PARANOID TYPE
  4. LORAZEPAM [Concomitant]
  5. PREDNISONE [Concomitant]
     Indication: SYSTEMIC LUPUS ERYTHEMATOSUS
  6. HYDROXYCHLOROQUINE [Concomitant]

REACTIONS (1)
  - Acute psychosis [Recovered/Resolved]
